FAERS Safety Report 8481419-9 (Version None)
Quarter: 2012Q3

REPORT INFORMATION
  Report Type: 
  Country: None (occurrence: None)
  Receive Date: 20120702
  Receipt Date: 20120627
  Transmission Date: 20120928
  Serious: Yes (Death, Hospitalization, Other)
  Sender: FDA-Public Use
  Company Number: BR-ASTELLAS-2012US005855

PATIENT
  Sex: Male

DRUGS (1)
  1. TARCEVA [Suspect]
     Indication: LUNG NEOPLASM MALIGNANT
     Dosage: 2 DF, UID/QD
     Route: 048

REACTIONS (4)
  - HOSPITALISATION [None]
  - PLEURAL EFFUSION [None]
  - CARDIAC DISORDER [None]
  - DEATH [None]
